FAERS Safety Report 13994241 (Version 1)
Quarter: 2017Q3

REPORT INFORMATION
  Report Type: Spontaneous
  Country: US (occurrence: US)
  Receive Date: 20170920
  Receipt Date: 20170920
  Transmission Date: 20171128
  Serious: Yes (Other)
  Sender: FDA-Public Use
  Company Number: None

PATIENT
  Age: 37 Year
  Sex: Male
  Weight: 49.5 kg

DRUGS (3)
  1. BUPRENORPHINE AND NALOXONE [Suspect]
     Active Substance: BUPRENORPHINE\NALOXONE
     Indication: DRUG DEPENDENCE
     Dates: start: 20170710, end: 20170720
  2. BUPRENORPHINE AND NALOXONE [Suspect]
     Active Substance: BUPRENORPHINE\NALOXONE
     Indication: COELIAC DISEASE
     Dates: start: 20170710, end: 20170720
  3. BUPRENORPHINE AND NALOXONE [Suspect]
     Active Substance: BUPRENORPHINE\NALOXONE
     Indication: GLUTEN SENSITIVITY
     Dates: start: 20170710, end: 20170720

REACTIONS (3)
  - Coeliac disease [None]
  - Condition aggravated [None]
  - Reaction to excipient [None]

NARRATIVE: CASE EVENT DATE: 20170710
